FAERS Safety Report 11894058 (Version 3)
Quarter: 2016Q2

REPORT INFORMATION
  Report Type: Report from Study
  Country: PT (occurrence: PT)
  Receive Date: 20160107
  Receipt Date: 20160403
  Transmission Date: 20160815
  Serious: Yes (Hospitalization)
  Sender: FDA-Public Use
  Company Number: PT-BRISTOL-MYERS SQUIBB COMPANY-BMS-2015-092707

PATIENT
  Age: 71 Year
  Sex: Male
  Weight: 84.4 kg

DRUGS (6)
  1. NIVOLUMAB [Suspect]
     Active Substance: NIVOLUMAB
     Dosage: 253.2 MG, TOTAL
     Route: 065
     Dates: start: 20151112
  2. NIVOLUMAB [Suspect]
     Active Substance: NIVOLUMAB
     Dosage: 253.2 MG, TOTAL
     Route: 065
     Dates: start: 20151126
  3. NIVOLUMAB [Suspect]
     Active Substance: NIVOLUMAB
     Dosage: 253.2 MG, TOTAL
     Route: 065
     Dates: start: 20151029
  4. NIVOLUMAB [Suspect]
     Active Substance: NIVOLUMAB
     Dosage: 253.2 MG, TOTAL
     Route: 065
     Dates: start: 20151211
  5. NIVOLUMAB [Suspect]
     Active Substance: NIVOLUMAB
     Indication: METASTATIC MALIGNANT MELANOMA
     Dosage: 253.2 MG, TOTAL
     Route: 065
     Dates: start: 20151015
  6. DEXAMETHASONE. [Concomitant]
     Active Substance: DEXAMETHASONE
     Indication: PRODUCT USED FOR UNKNOWN INDICATION
     Dosage: 8 MG, UNK
     Route: 048
     Dates: start: 20151228

REACTIONS (1)
  - Dyspnoea [Recovered/Resolved]

NARRATIVE: CASE EVENT DATE: 20151228
